FAERS Safety Report 26169410 (Version 1)
Quarter: 2025Q4

REPORT INFORMATION
  Report Type: Spontaneous
  Country: US (occurrence: None)
  Receive Date: 20251217
  Receipt Date: 20251217
  Transmission Date: 20260118
  Serious: Yes (Hospitalization)
  Sender: FDA-CTU
  Company Number: None

PATIENT
  Age: 74 Year
  Sex: Male

DRUGS (5)
  1. APIXABAN [Suspect]
     Active Substance: APIXABAN
     Indication: Atrial fibrillation
     Dosage: 1 TAB BID PO
     Route: 048
     Dates: start: 20180607, end: 20250424
  2. PLAVIX [Suspect]
     Active Substance: CLOPIDOGREL BISULFATE
  3. AMIODARONE [Suspect]
     Active Substance: AMIODARONE
  4. TOPROL XL [Suspect]
     Active Substance: METOPROLOL SUCCINATE
  5. IMDUR [Suspect]
     Active Substance: ISOSORBIDE MONONITRATE

REACTIONS (2)
  - Gastrointestinal haemorrhage [None]
  - Therapy interrupted [None]

NARRATIVE: CASE EVENT DATE: 20250404
